FAERS Safety Report 7331280-0 (Version None)
Quarter: 2011Q1

REPORT INFORMATION
  Report Type: 
  Country: None (occurrence: None)
  Receive Date: 20110304
  Receipt Date: 20110224
  Transmission Date: 20110831
  Serious: Yes (Other)
  Sender: FDA-Public Use
  Company Number: US-GENZYME-FLUD-1000757

PATIENT

DRUGS (8)
  1. RITUXIMAB [Suspect]
     Indication: STEM CELL TRANSPLANT
     Dosage: 375 MG/M2, ON DAYS +1 AND +8
     Route: 065
  2. MYCOPHENOLATE MOFETIL [Concomitant]
     Indication: PROPHYLAXIS AGAINST GRAFT VERSUS HOST DISEASE
  3. TACROLIMUS [Concomitant]
     Indication: PROPHYLAXIS AGAINST GRAFT VERSUS HOST DISEASE
  4. FLUDARA [Suspect]
     Indication: SURGICAL PRECONDITIONING
     Dosage: 40 MG/M2, INFUSED OVER 30 MINUTES ON DAYS -6 TO -3
     Route: 042
  5. METHOTREXATE [Concomitant]
     Indication: PROPHYLAXIS AGAINST GRAFT VERSUS HOST DISEASE
  6. BUSULFAN [Suspect]
     Indication: SURGICAL PRECONDITIONING
     Dosage: 75 TO 170 MG/M2, OVER 4 HOURS QD ON DAYS -6 TO -3
     Route: 042
  7. SIROLIMUS [Concomitant]
     Indication: PROPHYLAXIS AGAINST GRAFT VERSUS HOST DISEASE
  8. THYMOGLOBULIN [Suspect]
     Indication: SURGICAL PRECONDITIONING
     Dosage: UNK UNK, UNK
     Route: 042

REACTIONS (6)
  - CYTOMEGALOVIRUS INFECTION [None]
  - FUNGAL INFECTION [None]
  - VIRAL INFECTION [None]
  - BACTERIAL INFECTION [None]
  - CHRONIC GRAFT VERSUS HOST DISEASE [None]
  - ACUTE GRAFT VERSUS HOST DISEASE [None]
